FAERS Safety Report 9781768 (Version 1)
Quarter: 2013Q4

REPORT INFORMATION
  Report Type: Report from Study
  Country: CA (occurrence: CA)
  Receive Date: 20131225
  Receipt Date: 20131225
  Transmission Date: 20140711
  Serious: Yes (Other)
  Sender: FDA-Public Use
  Company Number: CA-ROCHE-1325212

PATIENT
  Age: 95 Year
  Sex: Female

DRUGS (3)
  1. RANIBIZUMAB [Suspect]
     Indication: AGE-RELATED MACULAR DEGENERATION
     Dosage: IN BOTH EYES
     Route: 050
     Dates: start: 2008
  2. RANIBIZUMAB [Suspect]
     Route: 050
     Dates: start: 2009
  3. RANIBIZUMAB [Suspect]
     Route: 050
     Dates: start: 20131210

REACTIONS (4)
  - Injection site injury [Recovered/Resolved]
  - Eye haemorrhage [Unknown]
  - Visual impairment [Unknown]
  - Retinal disorder [Unknown]
